FAERS Safety Report 18571049 (Version 1)
Quarter: 2020Q4

REPORT INFORMATION
  Report Type: Spontaneous
  Country: US (occurrence: US)
  Receive Date: 20201202
  Receipt Date: 20201202
  Transmission Date: 20210114
  Serious: No
  Sender: FDA-Public Use
  Company Number: US-NOVEN PHARMACEUTICALS, INC.-2020US004227

PATIENT
  Sex: Female
  Weight: 77.1 kg

DRUGS (5)
  1. MINIVELLE [Suspect]
     Active Substance: ESTRADIOL
     Indication: OFF LABEL USE
  2. MINIVELLE [Suspect]
     Active Substance: ESTRADIOL
     Indication: HYSTERECTOMY
     Dosage: 0.0375 MG
     Route: 062
     Dates: start: 201704, end: 201804
  3. MINIVELLE [Suspect]
     Active Substance: ESTRADIOL
     Indication: SLEEP DISORDER
     Dosage: 0.0375 MG
     Route: 062
     Dates: start: 201904
  4. ESTRADIOL. [Suspect]
     Active Substance: ESTRADIOL
     Indication: PRODUCT USED FOR UNKNOWN INDICATION
     Dosage: 0.025 MG
     Route: 062
     Dates: start: 201804, end: 201904
  5. MINIVELLE [Suspect]
     Active Substance: ESTRADIOL
     Indication: FEELING HOT

REACTIONS (2)
  - Weight increased [Not Recovered/Not Resolved]
  - Off label use [Not Recovered/Not Resolved]

NARRATIVE: CASE EVENT DATE: 2016
